FAERS Safety Report 5243098-3 (Version None)
Quarter: 2007Q1

REPORT INFORMATION
  Report Type: 
  Country: None (occurrence: None)
  Receive Date: 20070213
  Receipt Date: 20070129
  Transmission Date: 20070707
  Serious: Yes (Hospitalization)
  Sender: FDA-Public Use
  Company Number: S07-FRA-00604-01

PATIENT
  Age: 83 Year
  Sex: Female

DRUGS (3)
  1. SEROPLEX (ESCITALOPRAM) [Suspect]
     Indication: DEPRESSION
     Dosage: 10 MG QD PO
     Route: 048
  2. SEROPLEX (ESCITALOPRAM) [Suspect]
     Indication: DEPRESSION
     Dosage: 5 MG QD PO
     Route: 048
  3. SEROPLEX (ESCITALOPRAM) [Suspect]
     Indication: DEPRESSION
     Dosage: 5 MG QD PO
     Route: 048

REACTIONS (3)
  - FACIAL BONES FRACTURE [None]
  - FALL [None]
  - ORTHOSTATIC HYPOTENSION [None]
